FAERS Safety Report 9314242 (Version 2)
Quarter: 2013Q2

REPORT INFORMATION
  Report Type: Report from Study
  Country: TR (occurrence: TR)
  Receive Date: 20130529
  Receipt Date: 20130607
  Transmission Date: 20140414
  Serious: Yes (Other)
  Sender: FDA-Public Use
  Company Number: PHHY2013TR052494

PATIENT
  Age: 33 Year
  Sex: Female
  Weight: 68 kg

DRUGS (7)
  1. EXJADE [Suspect]
     Indication: THALASSAEMIA BETA
     Dosage: 2000 MG, DAILY
     Route: 048
     Dates: start: 2008
  2. DESFERAL [Concomitant]
     Indication: THALASSAEMIA BETA
     Dosage: 5 DF, UNK
     Route: 058
     Dates: start: 1981
  3. EUTHYROX [Concomitant]
     Dosage: 37.5, DAILY
     Route: 048
     Dates: start: 2008
  4. CAL-D-VITA [Concomitant]
     Dosage: 1DF, DAILY
     Route: 048
     Dates: start: 2008
  5. PENADUR [Concomitant]
     Dosage: 1200 MG, DAILY
     Route: 030
     Dates: start: 2003
  6. CYCLO PROGINOVA [Concomitant]
     Dosage: 1 DF, DAILY
     Route: 048
     Dates: start: 2008
  7. FOSAMAX [Concomitant]
     Dosage: 1 DF, DAILY
     Route: 048
     Dates: start: 2008

REACTIONS (3)
  - Fall [Unknown]
  - Limb injury [Recovering/Resolving]
  - Joint injury [Recovering/Resolving]
